FAERS Safety Report 8025223-4 (Version None)
Quarter: 2012Q1

REPORT INFORMATION
  Report Type: 
  Country: None (occurrence: None)
  Receive Date: 20120105
  Receipt Date: 20111223
  Transmission Date: 20120608
  Serious: Yes (Hospitalization)
  Sender: FDA-Public Use
  Company Number: BG-GLAXOSMITHKLINE-Z0013455A

PATIENT
  Sex: Male
  Weight: 75 kg

DRUGS (1)
  1. OFATUMUMAB [Suspect]
     Indication: CHRONIC LYMPHOCYTIC LEUKAEMIA REFRACTORY
     Dosage: 1000MG CYCLIC
     Route: 042
     Dates: start: 20111121

REACTIONS (1)
  - FEBRILE NEUTROPENIA [None]
